FAERS Safety Report 21623571 (Version 1)
Quarter: 2022Q4

REPORT INFORMATION
  Report Type: Spontaneous
  Country: US (occurrence: None)
  Receive Date: 20221121
  Receipt Date: 20221121
  Transmission Date: 20230112
  Serious: Yes (Hospitalization)
  Sender: FDA-Public Use
  Company Number: None

PATIENT
  Age: 68 Year
  Sex: Male
  Weight: 83.25 kg

DRUGS (1)
  1. REPATHA [Suspect]
     Active Substance: EVOLOCUMAB
     Dates: start: 20220628, end: 20220628

REACTIONS (9)
  - Chills [None]
  - Blood pressure increased [None]
  - Body temperature abnormal [None]
  - Heart rate increased [None]
  - Diarrhoea [None]
  - Back pain [None]
  - Peripheral swelling [None]
  - Retching [None]
  - Urticaria [None]

NARRATIVE: CASE EVENT DATE: 20220628
